FAERS Safety Report 21850386 (Version 1)
Quarter: 2023Q1

REPORT INFORMATION
  Report Type: Spontaneous
  Country: US (occurrence: None)
  Receive Date: 20230111
  Receipt Date: 20230111
  Transmission Date: 20230418
  Serious: Yes (unspecified)
  Sender: FDA-Public Use
  Company Number: None

PATIENT
  Age: 60 Year
  Sex: Female
  Weight: 82.6 kg

DRUGS (1)
  1. VENOFER [Suspect]
     Active Substance: IRON SUCROSE
     Indication: Iron deficiency anaemia
     Dosage: OTHER FREQUENCY : WEEKLY;?
     Route: 041
     Dates: start: 20221221

REACTIONS (3)
  - Chest discomfort [None]
  - Head discomfort [None]
  - Infusion related reaction [None]

NARRATIVE: CASE EVENT DATE: 20221221
